FAERS Safety Report 25904690 (Version 3)
Quarter: 2025Q4

REPORT INFORMATION
  Report Type: Report from Study
  Country: EG (occurrence: EG)
  Receive Date: 20251010
  Receipt Date: 20251105
  Transmission Date: 20260118
  Serious: Yes (Other)
  Sender: NOVARTIS
  Company Number: EG-002147023-NVSC2022EG221218

PATIENT
  Age: 65 Year
  Sex: Female

DRUGS (16)
  1. ENTRESTO [Suspect]
     Active Substance: SACUBITRIL\VALSARTAN
     Indication: Heart failure with reduced ejection fraction
     Dosage: 50 MG, BID
     Route: 048
     Dates: start: 2021
  2. ENTRESTO [Suspect]
     Active Substance: SACUBITRIL\VALSARTAN
     Dosage: 100 MG, BID
     Route: 048
  3. ENTRESTO [Suspect]
     Active Substance: SACUBITRIL\VALSARTAN
     Dosage: 200 MG, QD (ONE TABLET ONCE DAILY (OFF LABEL DOSE))
     Route: 048
  4. ENTRESTO [Suspect]
     Active Substance: SACUBITRIL\VALSARTAN
     Dosage: 1 DOSAGE FORM, BID (100 MG)
     Route: 048
  5. ENTRESTO [Suspect]
     Active Substance: SACUBITRIL\VALSARTAN
     Dosage: UNK, BID
     Route: 065
     Dates: start: 202104, end: 202204
  6. ENTRESTO [Suspect]
     Active Substance: SACUBITRIL\VALSARTAN
     Dosage: UNK
     Route: 065
     Dates: start: 202204
  7. ENTRESTO [Suspect]
     Active Substance: SACUBITRIL\VALSARTAN
     Dosage: 50 MG
     Route: 065
     Dates: start: 20220815
  8. ENTRESTO [Suspect]
     Active Substance: SACUBITRIL\VALSARTAN
     Dosage: 1 DOSAGE FORM, BID (50MG)
     Route: 065
  9. ASPIRIN [Concomitant]
     Active Substance: ASPIRIN
     Indication: Cardiac failure
     Dosage: 1 DOSAGE FORM, BID (1 TABLET TWICE A DAY))
     Route: 048
     Dates: start: 2020
  10. ASPIRIN [Concomitant]
     Active Substance: ASPIRIN
     Dosage: 1 DOSAGE FORM, BID (1 TABLET TWICE A DAY))
     Route: 048
     Dates: start: 2021
  11. NEBIVOLOL [Concomitant]
     Active Substance: NEBIVOLOL
     Indication: Hypertension
     Dosage: UNK1 DOSAGE FORM, QD (STARTED ON JUNE OR AUG 2020 AFTER LUNCH)
     Route: 065
  12. NEBIVOLOL [Concomitant]
     Active Substance: NEBIVOLOL
     Dosage: 1 DOSAGE FORM, BID (1 TABLET TWICE A DAY)
     Route: 048
  13. NEBIVOLOL [Concomitant]
     Active Substance: NEBIVOLOL
     Dosage: 1 DOSAGE FORM, BID (START DATE: TEN YEARS AGO, FROM MRD 28-OCT-2025)
     Route: 048
  14. Diamicron [Concomitant]
     Indication: Diabetes mellitus
     Dosage: 1 DOSAGE FORM, BID (1 TABLET TWICE A DAY)
     Route: 048
     Dates: start: 2016
  15. Diamicron [Concomitant]
     Dosage: 1 DOSAGE FORM, BID (START DATE: TEN YEARS AGO, FROM MRD 28-OCT-2025)
     Route: 048
  16. JANUMET [Concomitant]
     Active Substance: METFORMIN HYDROCHLORIDE\SITAGLIPTIN PHOSPHATE
     Indication: Diabetes mellitus
     Dosage: UNK
     Route: 048
     Dates: start: 2016

REACTIONS (3)
  - Blood pressure increased [Recovered/Resolved]
  - Ejection fraction decreased [Recovered/Resolved]
  - Off label use [Unknown]

NARRATIVE: CASE EVENT DATE: 20220815
